FAERS Safety Report 25833061 (Version 6)
Quarter: 2025Q4

REPORT INFORMATION
  Report Type: Spontaneous
  Country: US (occurrence: US)
  Receive Date: 20250922
  Receipt Date: 20251031
  Transmission Date: 20260117
  Serious: Yes (Other)
  Sender: PFIZER
  Company Number: US-PFIZER INC-202500184692

PATIENT
  Age: 49 Year
  Sex: Male

DRUGS (5)
  1. LORBRENA [Suspect]
     Active Substance: LORLATINIB
     Indication: Small cell lung cancer
     Dosage: 100 MG ONCE A DAY
     Dates: start: 202501
  2. LORBRENA [Suspect]
     Active Substance: LORLATINIB
     Indication: Neoplasm malignant
  3. LORBRENA [Suspect]
     Active Substance: LORLATINIB
     Indication: Brain neoplasm
  4. LORBRENA [Suspect]
     Active Substance: LORLATINIB
     Indication: Non-small cell lung cancer
  5. ELIQUIS [Suspect]
     Active Substance: APIXABAN
     Dosage: UNK

REACTIONS (8)
  - Psychotic disorder [Unknown]
  - Mania [Not Recovered/Not Resolved]
  - Mental impairment [Unknown]
  - Hallucination, auditory [Unknown]
  - Loss of personal independence in daily activities [Unknown]
  - Cognitive disorder [Unknown]
  - Speech disorder [Unknown]
  - Depression [Unknown]

NARRATIVE: CASE EVENT DATE: 20250101
